FAERS Safety Report 12575526 (Version 1)
Quarter: 2016Q3

REPORT INFORMATION
  Report Type: Spontaneous
  Country: US (occurrence: US)
  Receive Date: 20160720
  Receipt Date: 20160720
  Transmission Date: 20161109
  Serious: No
  Sender: FDA-Public Use
  Company Number: US-ASTELLAS-2016US019896

PATIENT
  Age: 65 Year
  Sex: Female

DRUGS (1)
  1. VESICARE [Suspect]
     Active Substance: SOLIFENACIN SUCCINATE
     Indication: BLADDER DISORDER
     Route: 048
     Dates: start: 20160518

REACTIONS (7)
  - Asthenia [Unknown]
  - Constipation [Unknown]
  - Pallor [Unknown]
  - Ulcer [Unknown]
  - Palpitations [Unknown]
  - Faeces discoloured [Unknown]
  - Dizziness [Unknown]

NARRATIVE: CASE EVENT DATE: 20160519
